FAERS Safety Report 4956509-5 (Version None)
Quarter: 2006Q1

REPORT INFORMATION
  Report Type: 
  Country: None (occurrence: None)
  Receive Date: 20060329
  Receipt Date: 20060208
  Transmission Date: 20060701
  Serious: Yes (Death, Hospitalization, Other)
  Sender: FDA-Public Use
  Company Number: US-MERCK-0602USA02286

PATIENT
  Age: 61 Year
  Sex: Female

DRUGS (7)
  1. VIOXX [Suspect]
     Indication: ARTHRITIS
     Route: 048
     Dates: start: 20030502
  2. VIOXX [Suspect]
     Route: 048
     Dates: start: 20040226, end: 20040301
  3. CAPTOPRIL MSD [Concomitant]
     Route: 048
  4. NEXIUM [Concomitant]
     Route: 065
  5. METOPROLOL [Concomitant]
     Route: 065
  6. NAPROXEN [Concomitant]
     Route: 065
  7. HYDRALAZINE [Concomitant]
     Route: 065

REACTIONS (10)
  - ACUTE MYOCARDIAL INFARCTION [None]
  - ANOXIC ENCEPHALOPATHY [None]
  - CARDIAC ARREST [None]
  - DEATH [None]
  - GALLBLADDER DISORDER [None]
  - HYPERKALAEMIA [None]
  - LIVER FUNCTION TEST ABNORMAL [None]
  - RENAL TUBULAR NECROSIS [None]
  - RESPIRATORY FAILURE [None]
  - URINARY TRACT INFECTION [None]
